FAERS Safety Report 5313471-3 (Version None)
Quarter: 2007Q2

REPORT INFORMATION
  Report Type: 
  Country: None (occurrence: None)
  Receive Date: 20070424
  Receipt Date: 20070413
  Transmission Date: 20071010
  Serious: Yes (Other)
  Sender: FDA-Public Use
  Company Number: 2007P1000157

PATIENT
  Age: 57 Year
  Sex: Male

DRUGS (1)
  1. BUSULFAN (BUSULFAN) [Suspect]
     Indication: STEM CELL TRANSPLANT
     Dosage: 60 MG; QID; IV
     Route: 042
     Dates: start: 20070307, end: 20070309

REACTIONS (2)
  - INJECTION SITE EXTRAVASATION [None]
  - SKIN IRRITATION [None]
